FAERS Safety Report 14109898 (Version 2)
Quarter: 2017Q4

REPORT INFORMATION
  Report Type: Report from Study
  Country: None (occurrence: US)
  Receive Date: 20171020
  Receipt Date: 20171208
  Transmission Date: 20180321
  Serious: Yes (Other)
  Sender: FDA-Public Use
  Company Number: US-ABBVIE-17K-163-2112808-00

PATIENT
  Age: 56 Year
  Sex: Male

DRUGS (1)
  1. HUMIRA [Suspect]
     Active Substance: ADALIMUMAB
     Indication: RHEUMATOID ARTHRITIS
     Route: 058
     Dates: start: 20170807

REACTIONS (15)
  - Impaired healing [Unknown]
  - Gait disturbance [Unknown]
  - Photosensitivity reaction [Recovering/Resolving]
  - Drug ineffective [Unknown]
  - Loss of personal independence in daily activities [Unknown]
  - Ulcer haemorrhage [Unknown]
  - Musculoskeletal stiffness [Unknown]
  - Anxiety [Recovering/Resolving]
  - Back pain [Recovering/Resolving]
  - Tenderness [Unknown]
  - Pain [Unknown]
  - Precancerous skin lesion [Unknown]
  - Nasal ulcer [Unknown]
  - Skin irritation [Unknown]
  - Injection site vesicles [Unknown]

NARRATIVE: CASE EVENT DATE: 2017
